FAERS Safety Report 8384898-0 (Version None)
Quarter: 2012Q2

REPORT INFORMATION
  Report Type: 
  Country: None (occurrence: None)
  Receive Date: 20120524
  Receipt Date: 20120523
  Transmission Date: 20120825
  Serious: No
  Sender: FDA-Public Use
  Company Number: US-PFIZER INC-2012125297

PATIENT
  Sex: Female

DRUGS (1)
  1. LYRICA [Suspect]
     Indication: STRESS ULCER
     Dosage: 25 MG, EVERY THREE HOURS A DAY
     Dates: start: 20120201, end: 20120301

REACTIONS (2)
  - FEELING ABNORMAL [None]
  - PAIN [None]
